FAERS Safety Report 4358835-X (Version None)
Quarter: 2004Q2

REPORT INFORMATION
  Report Type: 
  Country: None (occurrence: None)
  Receive Date: 20040512
  Receipt Date: 20040505
  Transmission Date: 20050107
  Serious: Yes (Disabling)
  Sender: FDA-Public Use
  Company Number: 2004-04-1635

PATIENT
  Age: 53 Year
  Sex: Female
  Weight: 60 kg

DRUGS (1)
  1. INTRON A [Suspect]
     Indication: HEPATITIS B
     Dosage: SUBCUTANEOUS
     Route: 058
     Dates: start: 19960101, end: 19960101

REACTIONS (4)
  - ARTHRITIS [None]
  - DYSPHAGIA [None]
  - SJOGREN'S SYNDROME [None]
  - SKIN ATROPHY [None]
